FAERS Safety Report 24648474 (Version 1)
Quarter: 2024Q4

REPORT INFORMATION
  Report Type: Spontaneous
  Country: CN (occurrence: CN)
  Receive Date: 20241121
  Receipt Date: 20241121
  Transmission Date: 20250115
  Serious: Yes (Hospitalization)
  Sender: PFIZER
  Company Number: CN-PFIZER INC-PV202400149180

PATIENT
  Age: 23 Year
  Sex: Female
  Weight: 55.1 kg

DRUGS (5)
  1. CYTARABINE [Suspect]
     Active Substance: CYTARABINE
     Indication: Acute myeloid leukaemia
     Dosage: 0.03 G, 1X/DAY
     Route: 037
     Dates: start: 20241010, end: 20241010
  2. CYTARABINE [Suspect]
     Active Substance: CYTARABINE
     Dosage: 0.15 G, 1X/DAY
     Route: 041
     Dates: start: 20241011, end: 20241018
  3. METHOTREXATE SODIUM [Suspect]
     Active Substance: METHOTREXATE SODIUM
     Indication: Acute myeloid leukaemia
     Dosage: 10 MG, 1X/DAY
     Route: 037
     Dates: start: 20241010, end: 20241010
  4. ETOPOSIDE [Suspect]
     Active Substance: ETOPOSIDE
     Indication: Acute myeloid leukaemia
     Dosage: 80 MG, 1X/DAY
     Route: 041
     Dates: start: 20241011, end: 20241014
  5. AZACITIDINE [Suspect]
     Active Substance: AZACITIDINE
     Indication: Acute myeloid leukaemia
     Dosage: 100 MG, 1X/DAY
     Route: 058
     Dates: start: 20241011, end: 20241018

REACTIONS (8)
  - Myelosuppression [Recovering/Resolving]
  - Vomiting [Recovering/Resolving]
  - Nausea [Recovering/Resolving]
  - Platelet count decreased [Recovering/Resolving]
  - Granulocyte count decreased [Recovering/Resolving]
  - Dizziness [Recovering/Resolving]
  - Headache [Recovering/Resolving]
  - Haemorrhage subcutaneous [Recovering/Resolving]

NARRATIVE: CASE EVENT DATE: 20241011
